FAERS Safety Report 17418101 (Version 1)
Quarter: 2020Q1

REPORT INFORMATION
  Report Type: Spontaneous
  Country: US (occurrence: US)
  Receive Date: 20200130
  Receipt Date: 20200130
  Transmission Date: 20200409
  Serious: Yes (Life-Threatening, Hospitalization)
  Sender: FDA-Public Use
  Company Number: None

PATIENT
  Age: 69 Year
  Sex: Male

DRUGS (3)
  1. SERTRALINE [Suspect]
     Active Substance: SERTRALINE HYDROCHLORIDE
     Indication: DEPRESSION
     Route: 048
     Dates: start: 20190619
  2. HALOPERIDOL. [Suspect]
     Active Substance: HALOPERIDOL
     Indication: PARANOIA
     Route: 048
     Dates: start: 20190618
  3. HALOPERIDOL. [Suspect]
     Active Substance: HALOPERIDOL
     Indication: SCHIZOPHRENIA
     Route: 048
     Dates: start: 20190618

REACTIONS (6)
  - Hyponatraemia [None]
  - Back pain [None]
  - Pain in extremity [None]
  - Peripheral swelling [None]
  - Agitation [None]
  - Confusional state [None]

NARRATIVE: CASE EVENT DATE: 20191111
